FAERS Safety Report 4670498-2 (Version None)
Quarter: 2005Q2

REPORT INFORMATION
  Report Type: 
  Country: None (occurrence: None)
  Receive Date: 20050523
  Receipt Date: 20041202
  Transmission Date: 20051028
  Serious: Yes (Hospitalization, Other)
  Sender: FDA-Public Use
  Company Number: US-MERCK-0412USA00648

PATIENT
  Age: 55 Year
  Sex: Male
  Weight: 136 kg

DRUGS (6)
  1. VIOXX [Suspect]
     Indication: ARTHRITIS
     Route: 048
     Dates: start: 19990803, end: 20021113
  2. VIOXX [Suspect]
     Route: 048
     Dates: start: 20000601
  3. VIOXX [Suspect]
     Route: 048
     Dates: start: 20030301, end: 20040801
  4. VIOXX [Suspect]
     Indication: RHEUMATOID ARTHRITIS
     Route: 048
     Dates: start: 19990803, end: 20021113
  5. VIOXX [Suspect]
     Route: 048
     Dates: start: 20000601
  6. VIOXX [Suspect]
     Route: 048
     Dates: start: 20030301, end: 20040801

REACTIONS (51)
  - ACROCHORDON [None]
  - ACTINIC KERATOSIS [None]
  - ACUTE MYOCARDIAL INFARCTION [None]
  - ANXIETY [None]
  - AORTIC VALVE SCLEROSIS [None]
  - ARTHRALGIA [None]
  - ASPARTATE AMINOTRANSFERASE INCREASED [None]
  - ATHEROSCLEROSIS [None]
  - BASAL CELL CARCINOMA [None]
  - BLOOD LACTATE DEHYDROGENASE INCREASED [None]
  - BLOOD PRESSURE INCREASED [None]
  - CHEST DISCOMFORT [None]
  - CHEST PAIN [None]
  - CONJUNCTIVITIS [None]
  - CORONARY ARTERY DISEASE [None]
  - CORONARY ARTERY OCCLUSION [None]
  - CORONARY ARTERY STENOSIS [None]
  - DERMATITIS [None]
  - DYSPEPSIA [None]
  - EJECTION FRACTION DECREASED [None]
  - EUSTACHIAN TUBE DISORDER [None]
  - EUSTACHIAN TUBE DYSFUNCTION [None]
  - EXCORIATION [None]
  - FIBROUS HISTIOCYTOMA [None]
  - FOREIGN BODY IN EYE [None]
  - GASTRITIS [None]
  - GASTROOESOPHAGEAL REFLUX DISEASE [None]
  - HYDROCELE [None]
  - INTRACARDIAC THROMBUS [None]
  - LACERATION [None]
  - LACRIMATION INCREASED [None]
  - MUSCLE SPASMS [None]
  - MYOCARDIAL INFARCTION [None]
  - OEDEMA PERIPHERAL [None]
  - PIGMENTED NAEVUS [None]
  - POLYCYTHAEMIA [None]
  - PROSTATIC SPECIFIC ANTIGEN INCREASED [None]
  - PYREXIA [None]
  - RIGHT VENTRICULAR FAILURE [None]
  - SCROTAL DISORDER [None]
  - SKIN LACERATION [None]
  - SKIN LESION [None]
  - SLEEP APNOEA SYNDROME [None]
  - SQUAMOUS CELL CARCINOMA OF SKIN [None]
  - SWELLING [None]
  - THROMBOCYTOPENIA [None]
  - TINNITUS [None]
  - TRICUSPID VALVE INCOMPETENCE [None]
  - VENTRICULAR DYSFUNCTION [None]
  - VENTRICULAR DYSKINESIA [None]
  - VENTRICULAR HYPERTROPHY [None]
